FAERS Safety Report 5088729-6 (Version None)
Quarter: 2006Q3

REPORT INFORMATION
  Report Type: 
  Country: None (occurrence: None)
  Receive Date: 20060825
  Receipt Date: 20060823
  Transmission Date: 20061208
  Serious: Yes (Other)
  Sender: FDA-Public Use
  Company Number: BPC-ZN-06-375

PATIENT
  Age: 67 Year
  Sex: Female

DRUGS (1)
  1. ZYBAN [Suspect]
     Indication: DRUG USE FOR UNKNOWN INDICATION
     Dosage: 150MG TWICE PER DAY
     Route: 048
     Dates: start: 20060813, end: 20060801

REACTIONS (3)
  - ANXIETY [None]
  - HOMICIDAL IDEATION [None]
  - INSOMNIA [None]
